FAERS Safety Report 5104041-0 (Version None)
Quarter: 2006Q3

REPORT INFORMATION
  Report Type: 
  Country: None (occurrence: None)
  Receive Date: 20060911
  Receipt Date: 20060828
  Transmission Date: 20061208
  Serious: Yes (Hospitalization)
  Sender: FDA-Public Use
  Company Number: 2006098437

PATIENT
  Age: 67 Year
  Sex: Male

DRUGS (12)
  1. TOLTERODINE TARTRATE [Suspect]
     Indication: MICTURITION URGENCY
     Dosage: 4 MG (4 MG, 1 IN 1 D), ORAL
     Route: 048
     Dates: start: 20060728, end: 20060729
  2. TOLTERODINE TARTRATE [Suspect]
     Indication: NOCTURIA
     Dosage: 4 MG (4 MG, 1 IN 1 D), ORAL
     Route: 048
     Dates: start: 20060728, end: 20060729
  3. TAMSULOSIN HCL [Concomitant]
  4. EVIPROSTAT (CHIMAPHILA UMBELLATA, EQUISETUM ARVENSE, MANGANESE CHLORID [Concomitant]
  5. IMIDAPRIL (IMIDAPRIL) [Concomitant]
  6. AMLODIPINE [Concomitant]
  7. GLICLAZIDE (GLICLAZIDE) [Concomitant]
  8. NIZATIDINE [Concomitant]
  9. BUP-4 (PROPIVERINE HYDROCHLORIDE) [Concomitant]
  10. BERIZYM (ENZYMES NOS) [Concomitant]
  11. NAUZELIN (DOMPERIDONE) [Concomitant]
  12. CLARITIN [Concomitant]

REACTIONS (4)
  - HEADACHE [None]
  - NAUSEA [None]
  - THERAPY NON-RESPONDER [None]
  - VOMITING [None]
